FAERS Safety Report 8335190-1 (Version None)
Quarter: 2012Q2

REPORT INFORMATION
  Report Type: 
  Country: None (occurrence: None)
  Receive Date: 20120503
  Receipt Date: 20120503
  Transmission Date: 20120825
  Serious: Yes (Other)
  Sender: FDA-Public Use
  Company Number: CN-JNJFOC-20120500125

PATIENT
  Sex: Male
  Weight: 66 kg

DRUGS (1)
  1. FENTANYL CITRATE [Suspect]
     Indication: PROPHYLAXIS
     Dosage: 8.39 MG
     Route: 062
     Dates: start: 20100922, end: 20100922

REACTIONS (5)
  - BLOOD PRESSURE INCREASED [None]
  - LOSS OF CONSCIOUSNESS [None]
  - RESPIRATORY DEPRESSION [None]
  - INAPPROPRIATE SCHEDULE OF DRUG ADMINISTRATION [None]
  - HEART RATE INCREASED [None]
